FAERS Safety Report 26063890 (Version 1)
Quarter: 2025Q4

REPORT INFORMATION
  Report Type: Spontaneous
  Country: AU (occurrence: AU)
  Receive Date: 20251119
  Receipt Date: 20251119
  Transmission Date: 20260117
  Serious: Yes (Hospitalization, Other)
  Sender: JOHNSON AND JOHNSON
  Company Number: AU-JNJFOC-20251151091

PATIENT

DRUGS (6)
  1. RISPERIDONE [Suspect]
     Active Substance: RISPERIDONE
     Indication: Product used for unknown indication
     Dosage: 10-FOLD DOSE
     Route: 065
  2. RISPERIDONE [Suspect]
     Active Substance: RISPERIDONE
  3. RISPERIDONE [Suspect]
     Active Substance: RISPERIDONE
  4. RISPERIDONE [Suspect]
     Active Substance: RISPERIDONE
  5. RISPERIDONE [Suspect]
     Active Substance: RISPERIDONE
  6. RISPERIDONE [Suspect]
     Active Substance: RISPERIDONE

REACTIONS (19)
  - Gaze palsy [Unknown]
  - Oculogyric crisis [Unknown]
  - Opisthotonus [Unknown]
  - Accidental overdose [Unknown]
  - Agitation [Unknown]
  - Emotional distress [Unknown]
  - Incorrect dose administered [Unknown]
  - Posture abnormal [Unknown]
  - Restlessness [Unknown]
  - Somnolence [Unknown]
  - Torticollis [Unknown]
  - Depressed level of consciousness [Unknown]
  - Dystonia [Unknown]
  - Urinary retention [Unknown]
  - Electrocardiogram QT prolonged [Unknown]
  - Seizure [Unknown]
  - Anticholinergic effect [Unknown]
  - Tachycardia [Unknown]
  - Hypotension [Unknown]
